FAERS Safety Report 7108191-9 (Version None)
Quarter: 2010Q4

REPORT INFORMATION
  Report Type: 
  Country: None (occurrence: None)
  Receive Date: 20101117
  Receipt Date: 20101105
  Transmission Date: 20110411
  Serious: Yes (Hospitalization, Other)
  Sender: FDA-Public Use
  Company Number: US-JNJFOC-20101103614

PATIENT
  Sex: Male
  Weight: 67.13 kg

DRUGS (2)
  1. LEVAQUIN [Suspect]
     Indication: PELVIC ABSCESS
     Route: 042
  2. LEVAQUIN [Suspect]
     Route: 048

REACTIONS (6)
  - ANXIETY [None]
  - BLOOD SODIUM DECREASED [None]
  - FEELING HOT [None]
  - INSOMNIA [None]
  - PARAESTHESIA [None]
  - RED BLOOD CELL COUNT DECREASED [None]
